FAERS Safety Report 14638994 (Version 1)
Quarter: 2018Q1

REPORT INFORMATION
  Report Type: Spontaneous
  Country: IT (occurrence: IT)
  Receive Date: 20180315
  Receipt Date: 20180315
  Transmission Date: 20180509
  Serious: Yes (Other)
  Sender: FDA-Public Use
  Company Number: IT-CIPLA LTD.-2018IT04118

PATIENT

DRUGS (3)
  1. TACHIPIRINA [Interacting]
     Active Substance: ACETAMINOPHEN
     Indication: INTENTIONAL SELF-INJURY
     Dosage: 2000 MG, IN TOTAL
     Route: 048
     Dates: start: 20170924, end: 20170924
  2. NAPROXEN. [Suspect]
     Active Substance: NAPROXEN
     Indication: INTENTIONAL SELF-INJURY
     Dosage: 2200 MG, IN TOTAL
     Route: 048
     Dates: start: 20170924, end: 20170924
  3. AUGMENTIN [Interacting]
     Active Substance: AMOXICILLIN\CLAVULANATE POTASSIUM
     Indication: INTENTIONAL SELF-INJURY
     Dosage: 3 G, UNK
     Route: 048
     Dates: start: 20170924, end: 20170924

REACTIONS (4)
  - Drug abuse [Recovering/Resolving]
  - Intentional self-injury [Recovering/Resolving]
  - Alcohol interaction [Recovering/Resolving]
  - Hyperchlorhydria [Recovering/Resolving]

NARRATIVE: CASE EVENT DATE: 20170924
